FAERS Safety Report 5574040-3 (Version None)
Quarter: 2007Q4

REPORT INFORMATION
  Report Type: 
  Country: None (occurrence: None)
  Receive Date: 20071221
  Receipt Date: 20071210
  Transmission Date: 20080405
  Serious: Yes (Other)
  Sender: FDA-Public Use
  Company Number: 2007S1013274

PATIENT
  Sex: Male

DRUGS (8)
  1. LOFEPRAMINE (LOFEPRAMINE) [Suspect]
  2. PAROXETINE HCL [Suspect]
     Indication: PHOBIA
  3. CODEINE SUL TAB [Suspect]
  4. IBUPROFEN [Suspect]
  5. IBUPROFEN [Suspect]
  6. FLUOXETINE HCL [Concomitant]
  7. LITHIUM [Concomitant]
  8. METHYLENEDIOXYMETHAMPHETAMINE [Concomitant]

REACTIONS (8)
  - CONSTIPATION [None]
  - DEPRESSION [None]
  - DRY MOUTH [None]
  - SEXUAL DYSFUNCTION [None]
  - SOCIAL PHOBIA [None]
  - SUICIDAL IDEATION [None]
  - SUICIDE ATTEMPT [None]
  - VISION BLURRED [None]
